FAERS Safety Report 16367255 (Version 4)
Quarter: 2019Q3

REPORT INFORMATION
  Report Type: Spontaneous
  Country: JP (occurrence: JP)
  Receive Date: 20190529
  Receipt Date: 20190710
  Transmission Date: 20191004
  Serious: Yes (Death, Life-Threatening, Other)
  Sender: FDA-Public Use
  Company Number: JP-BRISTOL-MYERS SQUIBB COMPANY-BMS-2019-023388

PATIENT
  Age: 68 Year
  Sex: Male
  Weight: 37.5 kg

DRUGS (6)
  1. OPDIVO [Suspect]
     Active Substance: NIVOLUMAB
     Indication: PRODUCT USED FOR UNKNOWN INDICATION
     Dosage: 120 MILLIGRAM
     Route: 041
     Dates: start: 20171108, end: 20171125
  2. OPDIVO [Suspect]
     Active Substance: NIVOLUMAB
     Indication: PRODUCT USED FOR UNKNOWN INDICATION
     Dosage: 117 MILLIGRAM
     Route: 041
     Dates: start: 20180202, end: 20180202
  3. OPDIVO [Suspect]
     Active Substance: NIVOLUMAB
     Indication: PRODUCT USED FOR UNKNOWN INDICATION
     Dosage: 116 MILLIGRAM
     Route: 041
     Dates: start: 20171208, end: 20180105
  4. OPDIVO [Suspect]
     Active Substance: NIVOLUMAB
     Indication: PRODUCT USED FOR UNKNOWN INDICATION
     Dosage: 110 MILLIGRAM
     Route: 041
     Dates: start: 20180119, end: 20180119
  5. OPDIVO [Suspect]
     Active Substance: NIVOLUMAB
     Indication: HEAD AND NECK CANCER METASTATIC
     Dosage: 112 MG(2017/9/27,10/11)
     Route: 041
     Dates: start: 20170927, end: 20171011
  6. OPDIVO [Suspect]
     Active Substance: NIVOLUMAB
     Indication: PRODUCT USED FOR UNKNOWN INDICATION
     Dosage: 117 MILLIGRAM
     Route: 041
     Dates: start: 20171025, end: 20171025

REACTIONS (4)
  - Pneumonia [Recovering/Resolving]
  - Normochromic normocytic anaemia [Recovering/Resolving]
  - Malignant neoplasm progression [Fatal]
  - Herpes zoster [Recovering/Resolving]

NARRATIVE: CASE EVENT DATE: 20171010
